FAERS Safety Report 7065670-0 (Version None)
Quarter: 2010Q4

REPORT INFORMATION
  Report Type: 
  Country: None (occurrence: None)
  Receive Date: 20101027
  Receipt Date: 20100920
  Transmission Date: 20110411
  Serious: Yes (Hospitalization)
  Sender: FDA-Public Use
  Company Number: PHHY2008US04690

PATIENT
  Sex: Male
  Weight: 91 kg

DRUGS (2)
  1. ERL 080A ERL+TAB [Suspect]
     Indication: RENAL TRANSPLANT
     Dosage: 540 MG, BID
     Route: 048
     Dates: start: 20071227
  2. ERL 080A ERL+TAB [Suspect]
     Dosage: 360 MG, BID
     Route: 048
     Dates: start: 20071227

REACTIONS (11)
  - ABDOMINAL DISCOMFORT [None]
  - BRONCHITIS [None]
  - CHEST PAIN [None]
  - CHILLS [None]
  - COUGH [None]
  - DYSPNOEA [None]
  - MALAISE [None]
  - PYREXIA [None]
  - SKIN ULCER [None]
  - STAPHYLOCOCCAL BACTERAEMIA [None]
  - VIRAL INFECTION [None]
